FAERS Safety Report 15568802 (Version 1)
Quarter: 2018Q4

REPORT INFORMATION
  Report Type: Spontaneous
  Country: DE (occurrence: DE)
  Receive Date: 20181031
  Receipt Date: 20181031
  Transmission Date: 20190205
  Serious: Yes (Other)
  Sender: FDA-Public Use
  Company Number: DE-ASTRAZENECA-2018SF27823

PATIENT
  Age: 23541 Day
  Sex: Female
  Weight: 70 kg

DRUGS (1)
  1. DAXAS [Suspect]
     Active Substance: ROFLUMILAST
     Dosage: 500
     Route: 048

REACTIONS (4)
  - Panic attack [Unknown]
  - Suicidal ideation [Recovered/Resolved]
  - Depression [Recovered/Resolved]
  - Anxiety [Unknown]

NARRATIVE: CASE EVENT DATE: 20180810
